FAERS Safety Report 5412969-7 (Version None)
Quarter: 2007Q3

REPORT INFORMATION
  Report Type: 
  Country: None (occurrence: None)
  Receive Date: 20070809
  Receipt Date: 20070726
  Transmission Date: 20080115
  Serious: Yes (Death, Hospitalization)
  Sender: FDA-Public Use
  Company Number: CIP07001489

PATIENT
  Age: 72 Year
  Sex: Female

DRUGS (1)
  1. ETIDRONATE DISODIUM [Suspect]

REACTIONS (5)
  - APACHE II SCORE INCREASED [None]
  - MULTI-ORGAN FAILURE [None]
  - PNEUMONIA [None]
  - STAPHYLOCOCCAL SEPSIS [None]
  - TOXIC EPIDERMAL NECROLYSIS [None]
